FAERS Safety Report 4293828-2 (Version None)
Quarter: 2004Q1

REPORT INFORMATION
  Report Type: 
  Country: None (occurrence: None)
  Receive Date: 20040211
  Receipt Date: 20040211
  Transmission Date: 20041129
  Serious: Yes (Hospitalization)
  Sender: FDA-Public Use
  Company Number: None

PATIENT
  Age: 52 Year
  Sex: Female
  Weight: 56.6996 kg

DRUGS (2)
  1. LUPRON [Suspect]
     Indication: UTERINE LEIOMYOMA
     Dosage: IM
     Route: 030
     Dates: start: 20031021
  2. LUPRON [Suspect]
     Indication: UTERINE LEIOMYOMA
     Dosage: IM
     Route: 030
     Dates: start: 20031120

REACTIONS (13)
  - ALANINE AMINOTRANSFERASE INCREASED [None]
  - AMNESIA [None]
  - ANXIETY [None]
  - ASPARTATE AMINOTRANSFERASE INCREASED [None]
  - DEPRESSION [None]
  - DIZZINESS [None]
  - INSOMNIA [None]
  - LIPASE INCREASED [None]
  - MOOD SWINGS [None]
  - NAUSEA [None]
  - TEMPERATURE REGULATION DISORDER [None]
  - VISION BLURRED [None]
  - VOMITING [None]
